FAERS Safety Report 7627032 (Version 6)
Quarter: 2013Q2

REPORT INFORMATION
  Report Type: Spontaneous
  Country: US (occurrence: US)
  Receive Date: 20101013
  Receipt Date: 20130506
  Transmission Date: 20140414
  Serious: Yes (Other)
  Sender: FDA-Public Use
  Company Number: US-ASTRAZENECA-2010SE15966

PATIENT
  Age: 81 Year
  Sex: Female

DRUGS (2)
  1. SYMBICORT PMDI [Suspect]
     Route: 055
  2. NEXIUM [Suspect]
     Route: 048

REACTIONS (16)
  - Hiatus hernia [Unknown]
  - Arthritis [Unknown]
  - Asthma [Unknown]
  - Respiratory disorder [Unknown]
  - Bronchitis [Unknown]
  - Chest pain [Unknown]
  - Ear discomfort [Unknown]
  - Dyspnoea [Unknown]
  - Nasopharyngitis [Unknown]
  - Aphagia [Unknown]
  - Malaise [Unknown]
  - Muscle spasms [Unknown]
  - Stress [Unknown]
  - Hernia [Unknown]
  - Tremor [Unknown]
  - Drug dose omission [Unknown]
